FAERS Safety Report 21334791 (Version 1)
Quarter: 2022Q3

REPORT INFORMATION
  Report Type: Spontaneous
  Country: US (occurrence: US)
  Receive Date: 20220914
  Receipt Date: 20220914
  Transmission Date: 20221026
  Serious: No
  Sender: FDA-Public Use
  Company Number: US-PFIZER INC-2019139754

PATIENT
  Age: 46 Year
  Sex: Male
  Weight: 71.67 kg

DRUGS (6)
  1. RAPAMUNE [Suspect]
     Active Substance: SIROLIMUS
     Indication: Heart transplant
     Dosage: 0.5 MG, 2X/DAY
     Route: 048
     Dates: start: 2018
  2. RAPAMUNE [Suspect]
     Active Substance: SIROLIMUS
     Dosage: 0.5 MG, 1X/DAY
     Route: 048
  3. PROGRAF [Concomitant]
     Active Substance: TACROLIMUS
     Indication: Transplant
     Dosage: 2.5 MG, 2X/DAY
     Dates: start: 201805
  4. ERGOCALCIFEROL [Concomitant]
     Active Substance: ERGOCALCIFEROL
     Indication: Vitamin D deficiency
     Dosage: 1000 IU, DAILY
     Dates: start: 201808
  5. PRAVASTATIN [Concomitant]
     Active Substance: PRAVASTATIN
     Indication: Transplant
     Dosage: 10 MG, DAILY (TAKE 1/2 TABLET)
     Dates: start: 201808
  6. ASPIRIN [Concomitant]
     Active Substance: ASPIRIN
     Indication: Cardiac disorder
     Dosage: 81 MG, DAILY
     Dates: start: 201808

REACTIONS (2)
  - Off label use [Unknown]
  - Feeling abnormal [Unknown]

NARRATIVE: CASE EVENT DATE: 20180101
